FAERS Safety Report 9336740 (Version 1)
Quarter: 2013Q2

REPORT INFORMATION
  Report Type: Spontaneous
  Country: IN (occurrence: IN)
  Receive Date: 20130607
  Receipt Date: 20130607
  Transmission Date: 20140414
  Serious: Yes (Life-Threatening, Hospitalization, Disabling)
  Sender: FDA-Public Use
  Company Number: IN-ROCHE-1233593

PATIENT
  Age: 67 Year
  Sex: Female

DRUGS (4)
  1. AVASTIN [Suspect]
     Indication: OVARIAN CANCER
     Route: 065
     Dates: start: 20130115
  2. CARBOPLATIN [Suspect]
     Indication: OVARIAN CANCER
     Route: 065
  3. CARBOPLATIN [Suspect]
     Dosage: 15 DOSES INFUSED UPTO  JUNE 2012
     Route: 065
     Dates: start: 20130115
  4. GEMCITABINE [Suspect]
     Indication: OVARIAN CANCER
     Route: 065
     Dates: start: 20130115

REACTIONS (5)
  - Confusional state [Not Recovered/Not Resolved]
  - Convulsion [Unknown]
  - Vaginal haemorrhage [Not Recovered/Not Resolved]
  - Vaginal fistula [Unknown]
  - Drug ineffective [Unknown]
